FAERS Safety Report 17063332 (Version 1)
Quarter: 2019Q4

REPORT INFORMATION
  Report Type: Spontaneous
  Country: US (occurrence: US)
  Receive Date: 20191121
  Receipt Date: 20191121
  Transmission Date: 20200122
  Serious: Yes (Other)
  Sender: FDA-Public Use
  Company Number: None

PATIENT
  Age: 66 Year
  Sex: Female
  Weight: 77.4 kg

DRUGS (8)
  1. AMLODIPINE [Concomitant]
     Active Substance: AMLODIPINE BESYLATE
  2. ASPIRIN. [Concomitant]
     Active Substance: ASPIRIN
  3. NATURE-THROID [Concomitant]
     Active Substance: THYROID, PORCINE
  4. METFORMIONER [Concomitant]
  5. VITAMIN C [Concomitant]
     Active Substance: ASCORBIC ACID
  6. BUPROPION 300XL [Suspect]
     Active Substance: BUPROPION
     Indication: DEPRESSION
     Dosage: ?          QUANTITY:1 TABLET(S);?
     Route: 048
     Dates: start: 20191005
  7. COZAAR [Concomitant]
     Active Substance: LOSARTAN POTASSIUM
  8. R-ALA [Concomitant]

REACTIONS (3)
  - Acne cystic [None]
  - Skin disorder [None]
  - Cyst [None]

NARRATIVE: CASE EVENT DATE: 20191118
